FAERS Safety Report 6994678-6 (Version None)
Quarter: 2010Q3

REPORT INFORMATION
  Report Type: 
  Country: None (occurrence: None)
  Receive Date: 20100915
  Receipt Date: 20100907
  Transmission Date: 20110219
  Serious: Yes (Hospitalization)
  Sender: FDA-Public Use
  Company Number: 015453

PATIENT
  Sex: Female
  Weight: 65 kg

DRUGS (4)
  1. TUSSIONEX [Suspect]
     Indication: BRONCHITIS
     Dosage: 5  ML 1X/12 HOURS, ONE TEASPOON EVERY 12 HOURS ORAL
     Route: 048
     Dates: start: 20060101, end: 20100701
  2. TUSSIONEX [Suspect]
     Indication: PNEUMONIA
     Dosage: 5  ML 1X/12 HOURS, ONE TEASPOON EVERY 12 HOURS ORAL
     Route: 048
     Dates: start: 20060101, end: 20100701
  3. PLAVIX [Concomitant]
  4. COUMADIN [Concomitant]

REACTIONS (3)
  - GASTROOESOPHAGEAL REFLUX DISEASE [None]
  - PNEUMONIA [None]
  - PNEUMONIA ASPIRATION [None]
